FAERS Safety Report 16454179 (Version 2)
Quarter: 2019Q2

REPORT INFORMATION
  Report Type: Spontaneous
  Country: US (occurrence: US)
  Receive Date: 20190620
  Receipt Date: 20190627
  Transmission Date: 20190711
  Serious: Yes (Life-Threatening, Hospitalization, Other)
  Sender: FDA-Public Use
  Company Number: US-BIOVITRUM-2019US1451

PATIENT
  Age: 67 Year
  Sex: Male
  Weight: 100 kg

DRUGS (6)
  1. GAMIFANT [Suspect]
     Active Substance: EMAPALUMAB-LZSG
     Indication: HAEMOPHAGOCYTIC LYMPHOHISTIOCYTOSIS
     Route: 042
     Dates: start: 20190501, end: 20190508
  2. ALBUMIN 25% [Concomitant]
     Active Substance: ALBUMIN HUMAN
     Indication: OEDEMA
     Route: 042
     Dates: start: 20190427
  3. CALCIUM CARBONATE. [Concomitant]
     Active Substance: CALCIUM CARBONATE
     Indication: HYPOCALCAEMIA
     Dates: start: 20190420, end: 20190529
  4. DEXAMETHASONE. [Concomitant]
     Active Substance: DEXAMETHASONE
     Dates: start: 20190418, end: 20190510
  5. DUONEB [Concomitant]
     Active Substance: ALBUTEROL SULFATE\IPRATROPIUM BROMIDE
     Indication: BRONCHOSPASM
     Dates: start: 20190414
  6. ATOVAQUONE. [Concomitant]
     Active Substance: ATOVAQUONE
     Indication: PNEUMOCYSTIS JIROVECII PNEUMONIA
     Dates: start: 20190414

REACTIONS (3)
  - Off label use [Recovered/Resolved]
  - Enterococcal bacteraemia [Not Recovered/Not Resolved]
  - Graft versus host disease [Unknown]

NARRATIVE: CASE EVENT DATE: 201905
